FAERS Safety Report 9703004 (Version 1)
Quarter: 2013Q4

REPORT INFORMATION
  Report Type: Spontaneous
  Country: CH (occurrence: CH)
  Receive Date: 20131122
  Receipt Date: 20131122
  Transmission Date: 20140711
  Serious: Yes (Other)
  Sender: FDA-Public Use
  Company Number: CH-ROCHE-1302449

PATIENT
  Sex: Male

DRUGS (6)
  1. MABTHERA [Suspect]
     Indication: CHRONIC LYMPHOCYTIC LEUKAEMIA
     Route: 042
     Dates: start: 20100825, end: 20120308
  2. MABTHERA [Suspect]
     Route: 042
     Dates: start: 201309
  3. BACTRIM [Suspect]
     Indication: PRODUCT USED FOR UNKNOWN INDICATION
     Route: 065
  4. ALLOPURINOL [Suspect]
     Indication: PRODUCT USED FOR UNKNOWN INDICATION
     Route: 065
  5. CYCLOPHOSPHAMID [Concomitant]
     Indication: CHRONIC LYMPHOCYTIC LEUKAEMIA
     Route: 065
     Dates: start: 20100825, end: 20120308
  6. DEXAMETHASON [Concomitant]
     Indication: CHRONIC LYMPHOCYTIC LEUKAEMIA
     Route: 065
     Dates: start: 20100825, end: 20120308

REACTIONS (6)
  - Thrombocytopenia [Unknown]
  - Blood immunoglobulin M decreased [Unknown]
  - Chronic lymphocytic leukaemia [Not Recovered/Not Resolved]
  - Hypertension [Unknown]
  - Sinusitis [Unknown]
  - Drug hypersensitivity [Unknown]
